FAERS Safety Report 7157495-2 (Version None)
Quarter: 2010Q4

REPORT INFORMATION
  Report Type: 
  Country: None (occurrence: None)
  Receive Date: 20101214
  Receipt Date: 20101209
  Transmission Date: 20110411
  Serious: Yes (Death, Hospitalization, Other)
  Sender: FDA-Public Use
  Company Number: PHHY2010JP84382

PATIENT
  Sex: Male

DRUGS (6)
  1. FASTIC [Suspect]
     Indication: DIABETES MELLITUS
     Dosage: 90 MG DAILY
     Route: 048
     Dates: start: 20100419, end: 20101111
  2. DIOVAN [Suspect]
     Indication: HYPERTENSION
     Dosage: 40 MG, UNK
     Route: 048
     Dates: start: 20100419, end: 20101111
  3. TAKEPRON [Suspect]
     Indication: GASTRIC ULCER
     Dosage: 15 MG, UNK
     Route: 048
     Dates: start: 20100724, end: 20101111
  4. ALLOPURINOL [Suspect]
     Indication: HYPERURICAEMIA
     Dosage: 100 MG, UNK
     Route: 048
     Dates: start: 20070619, end: 20101111
  5. DIART [Concomitant]
     Indication: RENAL FAILURE
     Dosage: 30 MG, UNK
     Dates: start: 20080718
  6. ULCERLMIN [Concomitant]
     Indication: GASTRIC ULCER
     Dosage: 3 G, UNK
     Dates: start: 20100724, end: 20101111

REACTIONS (4)
  - CARDIAC ARREST [None]
  - DYSPNOEA EXERTIONAL [None]
  - INTERSTITIAL LUNG DISEASE [None]
  - RENAL IMPAIRMENT [None]
